FAERS Safety Report 5309110-8 (Version None)
Quarter: 2007Q2

REPORT INFORMATION
  Report Type: 
  Country: None (occurrence: None)
  Receive Date: 20070417
  Receipt Date: 20070406
  Transmission Date: 20071010
  Serious: No
  Sender: FDA-Public Use
  Company Number: CART-10452

PATIENT
  Age: 45 Year
  Sex: Female

DRUGS (2)
  1. CARTICEL [Suspect]
     Indication: ARTHROPATHY
     Dosage: 1 NA ONCE IS
     Route: 035
     Dates: start: 19991118, end: 19991118
  2. CARTICEL [Suspect]
     Indication: BONE DISORDER
     Dosage: 1 NA ONCE IS
     Route: 035
     Dates: start: 19991118, end: 19991118

REACTIONS (5)
  - BONE MARROW OEDEMA [None]
  - FAILURE OF IMPLANT [None]
  - FRACTURE [None]
  - GRAFT COMPLICATION [None]
  - GRAFT OVERGROWTH [None]
